FAERS Safety Report 13778861 (Version 8)
Quarter: 2022Q4

REPORT INFORMATION
  Report Type: Spontaneous
  Country: US (occurrence: US)
  Receive Date: 20170721
  Receipt Date: 20221103
  Transmission Date: 20230113
  Serious: No
  Sender: FDA-Public Use
  Company Number: US-PFIZER INC-2017316465

PATIENT
  Age: 70 Year
  Sex: Female
  Weight: 66.22 kg

DRUGS (7)
  1. XELJANZ [Suspect]
     Active Substance: TOFACITINIB CITRATE
     Indication: Rheumatoid arthritis
     Dosage: 5 MG, 2X/DAY
     Route: 048
     Dates: start: 201511
  2. XELJANZ [Suspect]
     Active Substance: TOFACITINIB CITRATE
     Dosage: 5 MG, 2X/DAY (NEW BATCH, OVER 2 YEARS AGO)
     Route: 048
     Dates: start: 201511
  3. XELJANZ [Suspect]
     Active Substance: TOFACITINIB CITRATE
     Dosage: 5 MG, 2X/DAY
     Route: 048
     Dates: start: 201512
  4. PREDNISONE [Concomitant]
     Active Substance: PREDNISONE
     Indication: Rheumatoid arthritis
     Dosage: 10 MG, THREE TIMES A DAY
     Dates: start: 2011, end: 201706
  5. VITAMIN D [Concomitant]
     Active Substance: VITAMIN D NOS
     Indication: Vitamin D deficiency
     Dosage: 50000 IU, WEEKLY (TAKEN EVERY FRIDAY)
     Dates: start: 201710
  6. ALEVE [Concomitant]
     Active Substance: NAPROXEN SODIUM
     Indication: Musculoskeletal stiffness
     Dosage: UNK, AS NEEDED (2 IN THE MORNING AND 2 IN THE EVENING)
  7. ALEVE [Concomitant]
     Active Substance: NAPROXEN SODIUM
     Indication: Pain

REACTIONS (9)
  - Drug ineffective [Unknown]
  - Osteoarthritis [Unknown]
  - Gastric disorder [Not Recovered/Not Resolved]
  - Herpes zoster [Unknown]
  - Fatigue [Not Recovered/Not Resolved]
  - Abdominal discomfort [Recovered/Resolved]
  - Osteoporosis [Unknown]
  - Anxiety [Unknown]
  - Abdominal pain upper [Unknown]

NARRATIVE: CASE EVENT DATE: 20170929
